FAERS Safety Report 7250888-4 (Version None)
Quarter: 2011Q1

REPORT INFORMATION
  Report Type: 
  Country: None (occurrence: None)
  Receive Date: 20110128
  Receipt Date: 20110126
  Transmission Date: 20110831
  Serious: Yes (Hospitalization)
  Sender: FDA-Public Use
  Company Number: A0878754A

PATIENT
  Age: 43 Year
  Sex: Male

DRUGS (2)
  1. AVANDAMET [Suspect]
     Route: 048
     Dates: start: 20030901, end: 20060301
  2. AVANDIA [Suspect]
     Route: 048
     Dates: start: 20030901, end: 20060301

REACTIONS (4)
  - MYOCARDIAL INFARCTION [None]
  - FLUID OVERLOAD [None]
  - FLUID RETENTION [None]
  - CARDIAC ARREST [None]
